FAERS Safety Report 6899083-9 (Version None)
Quarter: 2010Q3

REPORT INFORMATION
  Report Type: 
  Country: None (occurrence: None)
  Receive Date: 20100802
  Receipt Date: 20080104
  Transmission Date: 20110219
  Serious: Yes (Other)
  Sender: FDA-Public Use
  Company Number: US-PFIZER INC-2007095250

PATIENT
  Age: 18 Year
  Sex: Male
  Weight: 106.6 kg

DRUGS (2)
  1. LYRICA [Suspect]
     Indication: LUMBAR RADICULOPATHY
  2. ZANAFLEX [Suspect]
     Indication: LUMBAR RADICULOPATHY

REACTIONS (1)
  - RASH [None]
